FAERS Safety Report 6107859-0 (Version None)
Quarter: 2009Q1

REPORT INFORMATION
  Report Type: 
  Country: None (occurrence: None)
  Receive Date: 20090305
  Receipt Date: 20090305
  Transmission Date: 20090719
  Serious: Yes (Other)
  Sender: FDA-Public Use
  Company Number: None

PATIENT
  Sex: Female
  Weight: 61.2356 kg

DRUGS (2)
  1. RAPTIVA [Suspect]
     Indication: PSORIASIS
     Dosage: 1 MG / KG WEEKLY SQ
     Route: 058
  2. GENGRAF [Suspect]
     Indication: PSORIASIS
     Dosage: 100 MG / DAY BID PO
     Route: 048

REACTIONS (7)
  - CONDITION AGGRAVATED [None]
  - GINGIVAL DISORDER [None]
  - NECROTISING ULCERATIVE PERIODONTITIS [None]
  - PROGRESSIVE MULTIFOCAL LEUKOENCEPHALOPATHY [None]
  - PSORIASIS [None]
  - RESORPTION BONE INCREASED [None]
  - TOOTH DISORDER [None]
